FAERS Safety Report 18014455 (Version 1)
Quarter: 2020Q3

REPORT INFORMATION
  Report Type: Spontaneous
  Country: IT (occurrence: IT)
  Receive Date: 20200713
  Receipt Date: 20200713
  Transmission Date: 20201103
  Serious: Yes (Other)
  Sender: FDA-Public Use
  Company Number: IT-PFIZER INC-2020266278

PATIENT
  Age: 71 Year
  Sex: Female

DRUGS (3)
  1. SALAZOPYRIN EN [Suspect]
     Active Substance: SULFASALAZINE
     Indication: RHEUMATOID ARTHRITIS
     Dosage: 500 MG, 2X/DAY
     Dates: start: 202005
  2. SALAZOPYRIN EN [Suspect]
     Active Substance: SULFASALAZINE
     Dosage: 400 MG, 4X/DAY
  3. MEDROL [Concomitant]
     Active Substance: METHYLPREDNISOLONE
     Dosage: 16 MG, DAILY

REACTIONS (3)
  - Off label use [Unknown]
  - Renal impairment [Unknown]
  - Rash [Unknown]

NARRATIVE: CASE EVENT DATE: 20200620
